FAERS Safety Report 4996198-7 (Version None)
Quarter: 2006Q2

REPORT INFORMATION
  Report Type: 
  Country: None (occurrence: None)
  Receive Date: 20060504
  Receipt Date: 20060424
  Transmission Date: 20061013
  Serious: Yes (Other)
  Sender: FDA-Public Use
  Company Number: B0421990A

PATIENT
  Age: 52 Year
  Sex: Female

DRUGS (3)
  1. LITHIUM CARBONATE [Suspect]
     Indication: AFFECTIVE DISORDER
     Dosage: UNKNOWN
     Route: 065
     Dates: start: 20030101
  2. HALOPERIDOL [Concomitant]
  3. TRICYCLIC ANTIDEPRESSANT [Concomitant]

REACTIONS (7)
  - AUTOMATISM [None]
  - BRADYPHRENIA [None]
  - COORDINATION ABNORMAL [None]
  - DEPRESSED LEVEL OF CONSCIOUSNESS [None]
  - DISORIENTATION [None]
  - SPEECH DISORDER [None]
  - STATUS EPILEPTICUS [None]
